FAERS Safety Report 25296338 (Version 1)
Quarter: 2025Q2

REPORT INFORMATION
  Report Type: Spontaneous
  Country: US (occurrence: US)
  Receive Date: 20250511
  Receipt Date: 20250511
  Transmission Date: 20250716
  Serious: No
  Sender: SANOFI AVENTIS
  Company Number: US-SA-2025SA133259

PATIENT
  Age: 18 Year
  Sex: Female

DRUGS (16)
  1. DUPIXENT [Suspect]
     Active Substance: DUPILUMAB
     Indication: Dermatitis atopic
     Route: 058
     Dates: start: 20230718
  2. ZYRTEC [Concomitant]
     Active Substance: CETIRIZINE HYDROCHLORIDE
  3. Nutrafol [Concomitant]
  4. DESLORATADINE [Concomitant]
     Active Substance: DESLORATADINE
  5. FASENRA [Concomitant]
     Active Substance: BENRALIZUMAB
  6. SINGULAIR [Concomitant]
     Active Substance: MONTELUKAST SODIUM
  7. CYCLOSPORINE [Concomitant]
     Active Substance: CYCLOSPORINE
  8. FLUTICASONE [Concomitant]
     Active Substance: FLUTICASONE
  9. CEPHALEXIN [Concomitant]
     Active Substance: CEPHALEXIN
  10. DOXYCYCLINE [Concomitant]
     Active Substance: DOXYCYCLINE
  11. NUCALA [Concomitant]
     Active Substance: MEPOLIZUMAB
  12. ADVAIR HFA [Concomitant]
     Active Substance: FLUTICASONE PROPIONATE\SALMETEROL XINAFOATE
  13. HUMIRA [Concomitant]
     Active Substance: ADALIMUMAB
  14. RINVOQ [Concomitant]
     Active Substance: UPADACITINIB
  15. PREDNISONE [Concomitant]
     Active Substance: PREDNISONE
  16. ALBUTEROL [Concomitant]
     Active Substance: ALBUTEROL

REACTIONS (2)
  - Hidradenitis [Recovering/Resolving]
  - Cyst [Not Recovered/Not Resolved]

NARRATIVE: CASE EVENT DATE: 20250503
